FAERS Safety Report 7251211-1 (Version None)
Quarter: 2011Q1

REPORT INFORMATION
  Report Type: 
  Country: None (occurrence: None)
  Receive Date: 20110105
  Receipt Date: 20101221
  Transmission Date: 20110831
  Serious: Yes (Hospitalization, Other)
  Sender: FDA-Public Use
  Company Number: 2010PROUSA00132

PATIENT
  Age: 79 Year
  Sex: Male
  Weight: 78.6 kg

DRUGS (15)
  1. PROVENGE (SIPULEUCEL-T) SUSPENSION, 250ML [Suspect]
     Indication: PROSTATE CANCER METASTATIC
     Dosage: 250 ML, SINGLE, INTRAVENOUS
     Route: 042
     Dates: start: 20101119, end: 20101119
  2. AMBIEN CR [Concomitant]
  3. HYDROCORTONE [Concomitant]
  4. ANUSOL	/00117301/ (BISMUTH HYDROXIDE, BISMUTH SUBGALLATE, BORIC ACID, [Concomitant]
  5. CALCIUM (CALCIUM) [Concomitant]
  6. DEXAMETHASONE [Concomitant]
  7. HYDROMORPHONE HCL [Concomitant]
  8. EYE DROPS (TETRYZOLINE HYDROCHLORIDE) [Concomitant]
  9. ATENOLOL [Concomitant]
  10. CLARITIN /00917501/ (LORATADINE) [Concomitant]
  11. OXYCODONE HCL [Concomitant]
  12. CARDURA [Concomitant]
  13. COLACE (DOCUSATE SODIUM) [Concomitant]
  14. WARFARIN (WARFARIN) [Concomitant]
  15. MECLOZINE (MECLOZINE [Concomitant]

REACTIONS (10)
  - ANAEMIA [None]
  - CONTUSION [None]
  - ORTHOSTATIC HYPOTENSION [None]
  - THROMBOCYTOPENIA [None]
  - DECREASED APPETITE [None]
  - DIZZINESS [None]
  - URINE FLOW DECREASED [None]
  - DEHYDRATION [None]
  - NAUSEA [None]
  - MUSCULAR WEAKNESS [None]
